FAERS Safety Report 20447513 (Version 1)
Quarter: 2022Q1

REPORT INFORMATION
  Report Type: Report from Study
  Country: US (occurrence: US)
  Receive Date: 20220209
  Receipt Date: 20220209
  Transmission Date: 20220424
  Serious: No
  Sender: FDA-Public Use
  Company Number: US-HRARD-2021000254

PATIENT
  Sex: Female

DRUGS (2)
  1. LYSODREN [Suspect]
     Active Substance: MITOTANE
     Dosage: INCREASE DOSE BY 500 MG UNTIL REACHING 3 G (NO DURATION OF TITRATION PROVIDED)
     Route: 048
     Dates: start: 20210319
  2. LYSODREN [Suspect]
     Active Substance: MITOTANE
     Dosage: 2000 MG THREE TIMES A DAY
     Route: 048
     Dates: start: 2021

REACTIONS (2)
  - Malaise [Not Recovered/Not Resolved]
  - Food interaction [Not Recovered/Not Resolved]
